FAERS Safety Report 23620343 (Version 1)
Quarter: 2024Q1

REPORT INFORMATION
  Report Type: Spontaneous
  Country: ZA (occurrence: None)
  Receive Date: 20240312
  Receipt Date: 20240312
  Transmission Date: 20240410
  Serious: Yes (Hospitalization)
  Sender: FDA-Public Use
  Company Number: 2024A055403

PATIENT
  Age: 16071 Day
  Sex: Female

DRUGS (4)
  1. BUDESONIDE\FORMOTEROL [Suspect]
     Active Substance: BUDESONIDE\FORMOTEROL
     Indication: Product used for unknown indication
     Dosage: 160/4.5 MCG,UNKNOWN UNKNOWN
     Route: 055
  2. ERGOCALCIFEROL [Concomitant]
     Active Substance: ERGOCALCIFEROL
     Dosage: 50000 IU50000.0MG UNKNOWN
     Route: 048
  3. TAMOXIFEN CITRATE [Concomitant]
     Active Substance: TAMOXIFEN CITRATE
     Indication: Neoplasm malignant
     Dosage: 20.0MG UNKNOWN
     Route: 048
  4. TRIVENZ [Concomitant]
     Indication: Antiviral treatment

REACTIONS (2)
  - Neoplasm malignant [Unknown]
  - Oncologic complication [Unknown]
